FAERS Safety Report 5575418-4 (Version None)
Quarter: 2007Q4

REPORT INFORMATION
  Report Type: 
  Country: None (occurrence: None)
  Receive Date: 20071227
  Receipt Date: 20071203
  Transmission Date: 20080405
  Serious: No
  Sender: FDA-Public Use
  Company Number: US-BOEHRINGER INGELHEIM PHARMACEUTICALS, INC.-2007-BP-25495BP

PATIENT
  Sex: Male

DRUGS (2)
  1. MIRAPEX [Suspect]
     Indication: PARKINSON'S DISEASE
     Route: 048
     Dates: start: 20071101, end: 20071101
  2. GENERIC RANITIDINE [Concomitant]
     Indication: GASTRIC DISORDER

REACTIONS (3)
  - ABNORMAL BEHAVIOUR [None]
  - HALLUCINATION [None]
  - NIGHTMARE [None]
